FAERS Safety Report 6294692-2 (Version None)
Quarter: 2009Q3

REPORT INFORMATION
  Report Type: 
  Country: None (occurrence: None)
  Receive Date: 20090803
  Receipt Date: 20090729
  Transmission Date: 20100115
  Serious: Yes (Life-Threatening)
  Sender: FDA-Public Use
  Company Number: A0799424A

PATIENT
  Age: 47 Year
  Sex: Male
  Weight: 155 kg

DRUGS (8)
  1. ADVAIR HFA [Suspect]
     Indication: DRUG USE FOR UNKNOWN INDICATION
     Dosage: 1ACTU TWICE PER DAY
     Route: 055
  2. ACEBUTOLOL [Concomitant]
     Route: 065
  3. FUROSEMIDE [Concomitant]
     Route: 065
  4. GLYBURIDE [Concomitant]
     Route: 065
  5. METFORMIN [Concomitant]
     Route: 065
  6. NORVASC [Concomitant]
     Route: 065
  7. RAMIPRIL [Concomitant]
     Route: 065
  8. ALBUTEROL [Concomitant]
     Route: 055

REACTIONS (6)
  - CHEST PAIN [None]
  - DYSPEPSIA [None]
  - DYSPNOEA [None]
  - HEADACHE [None]
  - PALPITATIONS [None]
  - TACHYCARDIA [None]
